FAERS Safety Report 15155602 (Version 1)
Quarter: 2018Q3

REPORT INFORMATION
  Report Type: Spontaneous
  Country: US (occurrence: US)
  Receive Date: 20180620
  Receipt Date: 20180620
  Transmission Date: 20181010
  Serious: Yes (Other)
  Sender: FDA-Public Use
  Company Number: None

PATIENT
  Age: 29 Year
  Sex: Male
  Weight: 60.75 kg

DRUGS (2)
  1. CLINDAMYCIN HCL 300MG [Suspect]
     Active Substance: CLINDAMYCIN HYDROCHLORIDE
     Indication: PHARYNGITIS
     Dosage: ?          QUANTITY:1 CAPSULE(S);?
     Route: 048
     Dates: start: 20180302, end: 20180304
  2. CLINDAMYCIN HCL 300MG [Suspect]
     Active Substance: CLINDAMYCIN HYDROCHLORIDE
     Indication: TONSILLITIS
     Dosage: ?          QUANTITY:1 CAPSULE(S);?
     Route: 048
     Dates: start: 20180302, end: 20180304

REACTIONS (4)
  - Gastrooesophageal reflux disease [None]
  - Dyspepsia [None]
  - Diarrhoea [None]
  - Clostridium difficile infection [None]

NARRATIVE: CASE EVENT DATE: 20180303
